FAERS Safety Report 6569745-1 (Version None)
Quarter: 2010Q1

REPORT INFORMATION
  Report Type: 
  Country: None (occurrence: None)
  Receive Date: 20100125
  Receipt Date: 20091016
  Transmission Date: 20100710
  Serious: Yes (Hospitalization)
  Sender: FDA-Public Use
  Company Number: 2009BI026014

PATIENT
  Age: 50 Year
  Sex: Male

DRUGS (10)
  1. TYSABRI [Suspect]
     Indication: MULTIPLE SCLEROSIS
     Dosage: 300 MG;QM;IV
     Route: 042
     Dates: start: 20080912
  2. PROVIGIL (CON.) [Concomitant]
  3. REGLAN (CON.) [Concomitant]
  4. GEMFIBROZIL (CON.) [Concomitant]
  5. TYLENOL (CON.) [Concomitant]
  6. PRILOSEC (CON.) [Concomitant]
  7. FLOMAX (CON.) [Concomitant]
  8. MULTIVITAMINS (CON.) [Concomitant]
  9. B-COMPLEX VITAMIN (CON.) [Concomitant]
  10. AVONEX (PREV.) [Concomitant]

REACTIONS (10)
  - ABDOMINAL PAIN UPPER [None]
  - ASTHENIA [None]
  - DIARRHOEA [None]
  - FATIGUE [None]
  - GAIT DISTURBANCE [None]
  - HYPOTENSION [None]
  - MEMORY IMPAIRMENT [None]
  - MULTIPLE SCLEROSIS [None]
  - PAIN [None]
  - URINARY TRACT INFECTION [None]
